FAERS Safety Report 12928681 (Version 4)
Quarter: 2016Q4

REPORT INFORMATION
  Report Type: Report from Study
  Country: KR (occurrence: KR)
  Receive Date: 20161110
  Receipt Date: 20161216
  Transmission Date: 20170207
  Serious: Yes (Hospitalization)
  Sender: FDA-Public Use
  Company Number: KR-ROCHE-1851144

PATIENT
  Age: 51 Year
  Sex: Male
  Weight: 54 kg

DRUGS (17)
  1. PRIVITUSS [Concomitant]
     Indication: COUGH
     Route: 065
     Dates: start: 20161006, end: 20161106
  2. STOGAR [Concomitant]
     Active Substance: LAFUTIDINE
     Indication: PROPHYLAXIS
     Route: 065
     Dates: start: 20161114, end: 20161205
  3. MAGO [Concomitant]
     Indication: CONSTIPATION
     Route: 065
     Dates: start: 20161128
  4. SMOFLIPID [Concomitant]
     Active Substance: FISH OIL\MEDIUM-CHAIN TRIGLYCERIDES\OLIVE OIL\SOYBEAN OIL
     Indication: ASTHENIA
     Route: 065
     Dates: start: 20161006, end: 20161006
  5. FLUCON (SOUTH KOREA) [Concomitant]
     Indication: CONJUNCTIVITIS
     Route: 047
     Dates: start: 20161108, end: 20161121
  6. ATEZOLIZUMAB [Suspect]
     Active Substance: ATEZOLIZUMAB
     Indication: NON-SMALL CELL LUNG CANCER
     Dosage: MOST RECENT DOSE 1200 MG PRIOR TO AE ONSET: 19/OCT/2016
     Route: 042
     Dates: start: 20160928
  7. ERDOS [Concomitant]
     Indication: PRODUCTIVE COUGH
     Route: 065
     Dates: start: 20161006, end: 20161117
  8. GASMOTIN [Concomitant]
     Active Substance: MOSAPRIDE CITRATE
     Indication: ABDOMINAL DISTENSION
     Route: 065
     Dates: start: 20161019, end: 20161117
  9. MEGACE F [Concomitant]
     Indication: HYPOPHAGIA
     Route: 065
     Dates: start: 20161006, end: 20161106
  10. LEVOFLOXACIN. [Concomitant]
     Active Substance: LEVOFLOXACIN
     Indication: CONJUNCTIVITIS
     Route: 047
     Dates: start: 20161108, end: 20161121
  11. CODEINE PHOSPHATE [Concomitant]
     Active Substance: CODEINE PHOSPHATE
     Indication: COUGH
     Route: 065
     Dates: start: 20161006, end: 20161018
  12. DUPHALAC-EASY [Concomitant]
     Indication: ABDOMINAL DISTENSION
     Route: 065
     Dates: start: 20161019, end: 20161117
  13. MEGACE F [Concomitant]
     Indication: DECREASED APPETITE
     Route: 065
     Dates: start: 20161212
  14. AMLODIPINE [Concomitant]
     Active Substance: AMLODIPINE BESYLATE
     Indication: HYPERTENSION
     Route: 065
     Dates: start: 20160923
  15. GASMOTIN [Concomitant]
     Active Substance: MOSAPRIDE CITRATE
     Route: 065
     Dates: start: 20161212
  16. DEXTROSE/SODIUM CHLORIDE [Concomitant]
     Indication: PROPHYLAXIS
     Route: 065
     Dates: start: 20161105, end: 20161107
  17. LEGALON [Concomitant]
     Active Substance: MILK THISTLE
     Indication: HEPATIC ENZYME INCREASED
     Route: 065
     Dates: start: 20161114, end: 20161121

REACTIONS (1)
  - Mouth ulceration [Recovered/Resolved]

NARRATIVE: CASE EVENT DATE: 20161102
